FAERS Safety Report 6102521-2 (Version None)
Quarter: 2009Q1

REPORT INFORMATION
  Report Type: 
  Country: None (occurrence: None)
  Receive Date: 20090304
  Receipt Date: 20080722
  Transmission Date: 20090719
  Serious: No
  Sender: FDA-Public Use
  Company Number: A0738887A

PATIENT
  Age: 69 Year
  Sex: Female

DRUGS (13)
  1. REQUIP [Suspect]
     Indication: RESTLESS LEGS SYNDROME
     Dosage: 1MG PER DAY
     Route: 048
     Dates: start: 20080421, end: 20080505
  2. HYDROCHLOROTHIAZIDE [Concomitant]
  3. ENALAPRIL MALEATE [Concomitant]
  4. GLIMEPIRIDE [Concomitant]
  5. SIMVASTATIN [Concomitant]
  6. NOVOLIN [Concomitant]
  7. CALTRATE [Concomitant]
  8. ASCORBIC ACID [Concomitant]
  9. CALCIUM [Concomitant]
  10. MAGNESIUM SULFATE [Concomitant]
  11. ZINC [Concomitant]
  12. LUNESTA [Concomitant]
  13. STOOL SOFTENER [Concomitant]

REACTIONS (1)
  - OEDEMA PERIPHERAL [None]
